FAERS Safety Report 10257735 (Version 1)
Quarter: 2014Q2

REPORT INFORMATION
  Report Type: Spontaneous
  Country: FR (occurrence: FR)
  Receive Date: 20140625
  Receipt Date: 20140625
  Transmission Date: 20141212
  Serious: Yes (Death, Hospitalization)
  Sender: FDA-Public Use
  Company Number: FR-TEVA-489666ISR

PATIENT
  Age: 6 Month
  Sex: Male
  Weight: 4.7 kg

DRUGS (7)
  1. SODIUM PAMIDRONATE TEVA [Suspect]
     Dosage: 1.2 MILLIGRAM DAILY;
     Route: 042
     Dates: start: 20120321, end: 20120323
  2. MOTILIUM [Concomitant]
     Dosage: 1 WEIGHT BASED DOSING EVERY 8 HOURS
     Route: 048
  3. INEXIUM [Concomitant]
     Dosage: 5 MILLIGRAM DAILY;
     Route: 048
  4. FERROSTRANE [Concomitant]
     Dosage: 34 MILLIGRAM DAILY;
     Route: 048
  5. ACIDE FOLIQUE [Concomitant]
     Dosage: 5 MILLIGRAM DAILY;
     Route: 048
  6. UVESTEROL D [Concomitant]
     Dosage: 1 ML DAILY;
  7. GLUCONATE DE CALCIUM [Concomitant]
     Dosage: 125 MILLIGRAM DAILY;

REACTIONS (6)
  - Respiratory distress [Recovered/Resolved]
  - Bradycardia [Recovered/Resolved]
  - Cyanosis [Recovered/Resolved]
  - Pyrexia [Recovered/Resolved]
  - Cardio-respiratory arrest [Recovered/Resolved]
  - Malaise [None]
